FAERS Safety Report 9837886 (Version 2)
Quarter: 2014Q1

REPORT INFORMATION
  Report Type: Spontaneous
  Country: US (occurrence: US)
  Receive Date: 20140123
  Receipt Date: 20140314
  Transmission Date: 20141002
  Serious: No
  Sender: FDA-Public Use
  Company Number: US-009507513-1401USA010612

PATIENT
  Age: 63 Year
  Sex: Female
  Weight: 90.7 kg

DRUGS (12)
  1. OXYTROL FOR WOMEN [Suspect]
     Indication: PRODUCT USED FOR UNKNOWN INDICATION
     Dosage: UNK, UNKNOWN
     Route: 062
     Dates: start: 201311, end: 201312
  2. ARICEPT [Concomitant]
     Indication: DEMENTIA ALZHEIMER^S TYPE
     Dosage: UNK, UNKNOWN
  3. ALEVE [Concomitant]
     Indication: FIBROMYALGIA
     Dosage: UNK, UNKNOWN
  4. IBUPROFEN [Concomitant]
     Indication: FIBROMYALGIA
     Dosage: UNK, UNKNOWN
  5. REQUIP [Concomitant]
     Indication: RESTLESS LEGS SYNDROME
     Dosage: UNK, UNKNOWN
  6. TOVIAZ [Concomitant]
     Indication: BLADDER DISORDER
     Dosage: UNK, UNKNOWN
  7. NORVASC [Concomitant]
     Indication: HYPERTENSION
     Dosage: UNK, UNKNOWN
  8. ZOLOFT [Concomitant]
     Indication: DEPRESSION
     Dosage: UNK, UNKNOWN
  9. VITAMIN B (UNSPECIFIED) [Concomitant]
     Indication: PRODUCT USED FOR UNKNOWN INDICATION
     Dosage: UNK, UNKNOWN
  10. VITAMIN D (UNSPECIFIED) [Concomitant]
     Indication: PRODUCT USED FOR UNKNOWN INDICATION
     Dosage: UNK, UNKNOWN
  11. FLEXERIL [Concomitant]
     Indication: BACK DISORDER
     Dosage: UNK, UNKNOWN
  12. SIMVASTATIN [Concomitant]
     Indication: BLOOD CHOLESTEROL ABNORMAL
     Dosage: UNK, UNKNOWN

REACTIONS (3)
  - Dermatitis contact [Not Recovered/Not Resolved]
  - Application site erythema [Not Recovered/Not Resolved]
  - Inappropriate schedule of drug administration [Unknown]
